FAERS Safety Report 23774453 (Version 1)
Quarter: 2024Q2

REPORT INFORMATION
  Report Type: Spontaneous
  Country: US (occurrence: US)
  Receive Date: 20240423
  Receipt Date: 20240423
  Transmission Date: 20240715
  Serious: Yes (Other)
  Sender: FDA-Public Use
  Company Number: US-RADIUS HEALTH INC.-2023US006890

PATIENT
  Age: 69 Year
  Sex: Female

DRUGS (2)
  1. BINOSTO [Suspect]
     Active Substance: ALENDRONATE SODIUM
     Indication: Product used for unknown indication
     Dosage: 70 MILLIGRAM QW
     Route: 048
  2. NITISINONE [Concomitant]
     Active Substance: NITISINONE
     Indication: Product used for unknown indication
     Dosage: UNK

REACTIONS (1)
  - Pathological fracture [Recovered/Resolved]
